FAERS Safety Report 6967268-9 (Version None)
Quarter: 2010Q3

REPORT INFORMATION
  Report Type: 
  Country: None (occurrence: None)
  Receive Date: 20100901
  Receipt Date: 20100823
  Transmission Date: 20110219
  Serious: Yes (Hospitalization)
  Sender: FDA-Public Use
  Company Number: TCI2010A03115

PATIENT
  Sex: Female

DRUGS (6)
  1. LANSOPRAZOLE [Suspect]
     Indication: PROPHYLAXIS AGAINST GASTROINTESTINAL ULCER
     Dosage: (15 MG,ABOUT TWICE PER WEEK (IRREGULAR BASIS)) PER ORAL
     Route: 048
     Dates: start: 20050101, end: 20100713
  2. PREDNISOLONE [Concomitant]
  3. ALFAROL (ALFACALCIDOL) [Concomitant]
  4. SLOW-K [Concomitant]
  5. URSO 250 [Concomitant]
  6. POTASSIUM [Concomitant]

REACTIONS (12)
  - ALANINE AMINOTRANSFERASE INCREASED [None]
  - ALCOHOL USE [None]
  - ASPARTATE AMINOTRANSFERASE INCREASED [None]
  - BLOOD ALKALINE PHOSPHATASE INCREASED [None]
  - BLOOD CALCIUM DECREASED [None]
  - BLOOD LACTATE DEHYDROGENASE INCREASED [None]
  - BLOOD MAGNESIUM DECREASED [None]
  - BLOOD POTASSIUM DECREASED [None]
  - DIARRHOEA [None]
  - GAMMA-GLUTAMYLTRANSFERASE INCREASED [None]
  - METABOLIC ALKALOSIS [None]
  - TETANY [None]
